FAERS Safety Report 4459183-X (Version None)
Quarter: 2004Q3

REPORT INFORMATION
  Report Type: 
  Country: None (occurrence: None)
  Receive Date: 20040920
  Receipt Date: 20040920
  Transmission Date: 20050211
  Serious: Yes (Hospitalization)
  Sender: FDA-Public Use
  Company Number: None

PATIENT
  Age: 16 Year
  Sex: Female
  Weight: 81.6475 kg

DRUGS (2)
  1. VANCOMYCIN [Suspect]
     Indication: BONE DISORDER
     Dosage: 1.5 GM Q12 HRS IV
     Route: 042
     Dates: start: 20040904, end: 20040919
  2. VANCOMYCIN [Suspect]
     Indication: STAPHYLOCOCCAL INFECTION

REACTIONS (1)
  - STEVENS-JOHNSON SYNDROME [None]
